FAERS Safety Report 9760456 (Version 2)
Quarter: 2014Q1

REPORT INFORMATION
  Report Type: Spontaneous
  Country: DE (occurrence: DE)
  Receive Date: 20131216
  Receipt Date: 20140103
  Transmission Date: 20141002
  Serious: Yes (Other)
  Sender: FDA-Public Use
  Company Number: DE-BRISTOL-MYERS SQUIBB COMPANY-19887504

PATIENT
  Sex: Female

DRUGS (1)
  1. ELIQUIS [Suspect]

REACTIONS (1)
  - Arthropathy [Unknown]
